FAERS Safety Report 7846435-6 (Version None)
Quarter: 2011Q4

REPORT INFORMATION
  Report Type: 
  Country: None (occurrence: None)
  Receive Date: 20111025
  Receipt Date: 20111025
  Transmission Date: 20120403
  Serious: No
  Sender: FDA-Public Use
  Company Number: None

PATIENT
  Age: 67 Year
  Sex: Male
  Weight: 86.182 kg

DRUGS (1)
  1. SINGULAIR [Suspect]
     Indication: SINUSITIS
     Dosage: 10 MG
     Route: 048
     Dates: start: 20111012, end: 20111024

REACTIONS (1)
  - EPISTAXIS [None]
